FAERS Safety Report 12113405 (Version 2)
Quarter: 2016Q2

REPORT INFORMATION
  Report Type: Spontaneous
  Country: NL (occurrence: NL)
  Receive Date: 20160225
  Receipt Date: 20160527
  Transmission Date: 20160815
  Serious: Yes (Death, Congenital Anomaly)
  Sender: FDA-Public Use
  Company Number: NL-009507513-1602NLD010891

PATIENT

DRUGS (3)
  1. ALENDRONATE SODIUM. [Suspect]
     Active Substance: ALENDRONATE SODIUM
     Indication: OSTEOPOROSIS
     Dosage: 1 TIME A DAY 1 UNIT(S)
     Route: 064
     Dates: start: 201403
  2. CALCIUM CARBONATE (+) CHOLECALCIFEROL [Concomitant]
     Active Substance: CALCIUM CARBONATE\CHOLECALCIFEROL
     Dosage: STRENGTH : 2,5G/880IE (1000MG CA), 1 TIME DAY 1 UNIT(S)
     Route: 064
     Dates: start: 2014
  3. ALENDRONATE SODIUM. [Suspect]
     Active Substance: ALENDRONATE SODIUM
     Indication: HYPERCALCAEMIA

REACTIONS (3)
  - Foetal death [Fatal]
  - Congenital central nervous system anomaly [Unknown]
  - Heart disease congenital [Unknown]

NARRATIVE: CASE EVENT DATE: 2015
